FAERS Safety Report 6683465-4 (Version None)
Quarter: 2010Q2

REPORT INFORMATION
  Report Type: 
  Country: None (occurrence: None)
  Receive Date: 20100415
  Receipt Date: 20100405
  Transmission Date: 20101027
  Serious: Yes (Death, Other)
  Sender: FDA-Public Use
  Company Number: US-GENENTECH-300427

PATIENT

DRUGS (13)
  1. RITUXAN [Suspect]
     Indication: MANTLE CELL LYMPHOMA
     Dosage: 375 MG/M2, UNK
     Route: 042
  2. RITUXAN [Suspect]
     Dosage: 375 MG/M2, UNK
     Route: 042
  3. DOXORUBICIN HCL [Suspect]
     Indication: MANTLE CELL LYMPHOMA
     Dosage: 45 MG/M2, UNK
     Route: 042
  4. CYCLOPHOSPHAMIDE [Suspect]
     Indication: MANTLE CELL LYMPHOMA
     Dosage: 800 MG/M2, UNK
     Route: 042
  5. CYCLOPHOSPHAMIDE [Suspect]
     Dosage: UNK
     Route: 042
  6. VINCRISTINE [Suspect]
     Indication: MANTLE CELL LYMPHOMA
     Dosage: 1.5 MG/M2, UNK
     Route: 065
  7. CYTARABINE [Suspect]
     Indication: MANTLE CELL LYMPHOMA
     Dosage: 2 G/M2, Q12H ON DAYS 1 AND 2 OF CYCLE 2
     Route: 042
  8. ETOPOSIDE [Suspect]
     Indication: MANTLE CELL LYMPHOMA
     Dosage: 60 MG/M2, UNK
     Route: 042
  9. IFOSFAMIDE [Suspect]
     Indication: MANTLE CELL LYMPHOMA
     Dosage: 1.5 G/M2, DAYS 1-5 OF CYCLE 2
     Route: 042
  10. LEUCOVORIN CALCIUM [Concomitant]
     Indication: DRUG USE FOR UNKNOWN INDICATION
     Dosage: 180 MG/M2, UNK
     Route: 042
  11. LEUCOVORIN CALCIUM [Concomitant]
     Dosage: 12 MG/M2, Q6H X10
     Route: 042
  12. NEUPOGEN [Concomitant]
     Indication: DRUG USE FOR UNKNOWN INDICATION
     Dosage: UNK
  13. MESNA [Concomitant]
     Indication: DRUG USE FOR UNKNOWN INDICATION
     Dosage: 360 MG/M2, UNK
     Route: 042

REACTIONS (14)
  - ANAEMIA [None]
  - BACTERAEMIA [None]
  - DEATH [None]
  - DIARRHOEA [None]
  - DYSPNOEA [None]
  - EMPYEMA [None]
  - FEBRILE NEUTROPENIA [None]
  - INFECTION [None]
  - MANTLE CELL LYMPHOMA [None]
  - MUCOSAL INFLAMMATION [None]
  - NEUTROPENIA [None]
  - PLEURAL EFFUSION [None]
  - SEPSIS [None]
  - THROMBOCYTOPENIA [None]
